FAERS Safety Report 18096065 (Version 2)
Quarter: 2020Q3

REPORT INFORMATION
  Report Type: Spontaneous
  Country: US (occurrence: US)
  Receive Date: 20200730
  Receipt Date: 20200806
  Transmission Date: 20201103
  Serious: Yes (Other)
  Sender: FDA-Public Use
  Company Number: US-PFIZER INC-2020289095

PATIENT
  Age: 14 Year
  Sex: Female

DRUGS (3)
  1. METHOTREXATE SODIUM. [Suspect]
     Active Substance: METHOTREXATE SODIUM
     Indication: JUVENILE IDIOPATHIC ARTHRITIS
     Dosage: UNK
  2. NAPROSYN [Concomitant]
     Active Substance: NAPROXEN
     Dosage: UNK
  3. HUMIRA [Concomitant]
     Active Substance: ADALIMUMAB
     Dosage: 40 MG, 2X/WEEK (BIWEEKLY, EVERY TWO?WEEK, 40?MILLIGRAM INJECTION OF HUMIRA)
     Dates: start: 201807

REACTIONS (8)
  - Eye disorder [Unknown]
  - Ligament sprain [Unknown]
  - Off label use [Unknown]
  - Product use in unapproved indication [Unknown]
  - Uveitis [Unknown]
  - Vomiting [Unknown]
  - Nausea [Unknown]
  - Condition aggravated [Unknown]
